FAERS Safety Report 4708832-7 (Version None)
Quarter: 2005Q3

REPORT INFORMATION
  Report Type: 
  Country: None (occurrence: None)
  Receive Date: 20050705
  Receipt Date: 20050629
  Transmission Date: 20060218
  Serious: Yes (Death)
  Sender: FDA-Public Use
  Company Number: J081-002-001994

PATIENT
  Age: 79 Year
  Sex: Female

DRUGS (9)
  1. ARICEPT [Suspect]
     Indication: DEMENTIA ALZHEIMER'S TYPE
     Dosage: SEE IMAGE, ORAL
     Route: 048
     Dates: start: 20050616, end: 20050621
  2. ARICEPT [Suspect]
     Indication: DEMENTIA ALZHEIMER'S TYPE
     Dosage: SEE IMAGE, ORAL
     Route: 048
     Dates: start: 20050622, end: 20050623
  3. TEGRETOL [Suspect]
     Dosage: SEE IMAGE, ORAL
     Route: 048
     Dates: start: 20050615, end: 20050620
  4. TEGRETOL [Suspect]
     Dosage: SEE IMAGE, ORAL
     Route: 048
     Dates: start: 20050621, end: 20050623
  5. LUVOX [Suspect]
     Dosage: 50 MG, 2 IN 1 D, ORAL
     Route: 048
     Dates: start: 20050615, end: 20050623
  6. CONSTAN (ALPRAZOLAM) [Concomitant]
  7. BROTIZOLAM (BROTIZOLAM) [Concomitant]
  8. LAXOBERON (SODIUM PICOSULFATE) [Concomitant]
  9. ENEMA (GLYCERIN) [Concomitant]

REACTIONS (26)
  - ANGER [None]
  - ANURIA [None]
  - BLOOD CREATINE PHOSPHOKINASE INCREASED [None]
  - BLOOD CREATININE INCREASED [None]
  - BLOOD PRESSURE DECREASED [None]
  - BLOOD UREA INCREASED [None]
  - BODY TEMPERATURE DECREASED [None]
  - C-REACTIVE PROTEIN INCREASED [None]
  - CONDITION AGGRAVATED [None]
  - CONSTIPATION [None]
  - CYANOSIS [None]
  - DEPRESSED LEVEL OF CONSCIOUSNESS [None]
  - DIARRHOEA [None]
  - DISSEMINATED INTRAVASCULAR COAGULATION [None]
  - EXTRASYSTOLES [None]
  - FLUID RETENTION [None]
  - INFECTION [None]
  - NEUROLEPTIC MALIGNANT SYNDROME [None]
  - OESOPHAGEAL DILATATION [None]
  - PYREXIA [None]
  - RENAL DISORDER [None]
  - RENAL FAILURE [None]
  - RESPIRATORY RATE INCREASED [None]
  - RHABDOMYOLYSIS [None]
  - TACHYCARDIA [None]
  - VENTRICULAR TACHYCARDIA [None]
